FAERS Safety Report 11399198 (Version 1)
Quarter: 2015Q3

REPORT INFORMATION
  Report Type: Spontaneous
  Country: US (occurrence: None)
  Receive Date: 20150819
  Receipt Date: 20150819
  Transmission Date: 20151125
  Serious: Yes (Disabling)
  Sender: FDA-Public Use
  Company Number: None

PATIENT
  Age: 64 Year
  Sex: Female
  Weight: 78.47 kg

DRUGS (12)
  1. MOVANTIK [Suspect]
     Active Substance: NALOXEGOL OXALATE
     Indication: CONSTIPATION
     Route: 048
     Dates: start: 20150624, end: 20150627
  2. CLONAZEPAM. [Concomitant]
     Active Substance: CLONAZEPAM
  3. CRESTOR [Concomitant]
     Active Substance: ROSUVASTATIN CALCIUM
  4. METHADONE [Concomitant]
     Active Substance: METHADONE HYDROCHLORIDE
  5. PREMARIN [Concomitant]
     Active Substance: ESTROGENS, CONJUGATED
  6. ROPINIROLE ER [Concomitant]
     Active Substance: ROPINIROLE
  7. FUROSEMIDE. [Suspect]
     Active Substance: FUROSEMIDE
  8. FOLIC ACID. [Concomitant]
     Active Substance: FOLIC ACID
  9. OMEPRAZOLE. [Concomitant]
     Active Substance: OMEPRAZOLE
  10. AMBIEN [Concomitant]
     Active Substance: ZOLPIDEM TARTRATE
  11. BACLOFEN. [Concomitant]
     Active Substance: BACLOFEN
  12. SPIRONOLACTONE. [Concomitant]
     Active Substance: SPIRONOLACTONE

REACTIONS (8)
  - Flatulence [None]
  - Headache [None]
  - Muscle spasms [None]
  - Discomfort [None]
  - Nausea [None]
  - Abdominal pain [None]
  - Feeling of body temperature change [None]
  - Restless legs syndrome [None]

NARRATIVE: CASE EVENT DATE: 20150624
